FAERS Safety Report 4939478-3 (Version None)
Quarter: 2006Q1

REPORT INFORMATION
  Report Type: 
  Country: None (occurrence: None)
  Receive Date: 20060310
  Receipt Date: 20060301
  Transmission Date: 20060701
  Serious: Yes (Hospitalization)
  Sender: FDA-Public Use
  Company Number: US-JNJFOC-20040202689

PATIENT
  Sex: Female

DRUGS (4)
  1. REMICADE [Suspect]
     Dosage: HAS HAD SIX INFUSIONS
     Route: 042
  2. REMICADE [Suspect]
     Indication: RHEUMATOID ARTHRITIS
     Dosage: 4 INFUSIONS TOTAL
     Route: 042
  3. METHOTREXATE [Concomitant]
  4. STEROIDS [Concomitant]

REACTIONS (2)
  - PULMONARY TUBERCULOSIS [None]
  - PYREXIA [None]
